FAERS Safety Report 25759933 (Version 1)
Quarter: 2025Q3

REPORT INFORMATION
  Report Type: Spontaneous
  Country: TR (occurrence: TR)
  Receive Date: 20250904
  Receipt Date: 20250904
  Transmission Date: 20251021
  Serious: Yes (Other)
  Sender: MYLAN
  Company Number: TR-MYLANLABS-2025M1073784

PATIENT
  Age: 19 Year
  Weight: 58 kg

DRUGS (4)
  1. LUSTRAL [Suspect]
     Active Substance: SERTRALINE HYDROCHLORIDE
     Indication: Obsessive-compulsive disorder
     Dosage: 100 MILLIGRAM, QD
     Dates: start: 20220101, end: 20230101
  2. FLUOXETINE [Suspect]
     Active Substance: FLUOXETINE HYDROCHLORIDE
     Indication: Obsessive-compulsive disorder
     Dosage: 20 MILLIGRAM, QD (20 MG/DAY)
     Dates: start: 20200101, end: 20220101
  3. RISPERIDONE [Suspect]
     Active Substance: RISPERIDONE
     Indication: Obsessive-compulsive disorder
     Dates: start: 20200101, end: 20230101
  4. HALOPERIDOL [Suspect]
     Active Substance: HALOPERIDOL
     Indication: Obsessive-compulsive disorder
     Dosage: 1 MILLIGRAM, QD (1 MG/DAY)
     Dates: start: 20200101, end: 20230101

REACTIONS (1)
  - Parkinsonism [Not Recovered/Not Resolved]

NARRATIVE: CASE EVENT DATE: 20200101
